FAERS Safety Report 14474660 (Version 1)
Quarter: 2018Q1

REPORT INFORMATION
  Report Type: Spontaneous
  Country: PT (occurrence: PT)
  Receive Date: 20180201
  Receipt Date: 20180201
  Transmission Date: 20180509
  Serious: Yes (Other)
  Sender: FDA-Public Use
  Company Number: PT-TEVA-2018-PT-850362

PATIENT
  Age: 37 Year
  Sex: Female
  Weight: 73 kg

DRUGS (2)
  1. SODOLAC [Concomitant]
     Indication: PRODUCT USED FOR UNKNOWN INDICATION
     Route: 065
  2. AZITROMICINA RATIOPHARM [Suspect]
     Active Substance: AZITHROMYCIN DIHYDRATE
     Indication: THROAT IRRITATION
     Dosage: 500 MILLIGRAM DAILY; 1 PER DAY 24/24 HOURS
     Route: 048
     Dates: start: 20171208, end: 20171209

REACTIONS (5)
  - Eyelid oedema [Not Recovered/Not Resolved]
  - Eye irritation [Not Recovered/Not Resolved]
  - Rash [Recovering/Resolving]
  - Skin exfoliation [Not Recovered/Not Resolved]
  - Pruritus [Recovering/Resolving]

NARRATIVE: CASE EVENT DATE: 20171208
